FAERS Safety Report 6801344-6 (Version None)
Quarter: 2010Q2

REPORT INFORMATION
  Report Type: 
  Country: None (occurrence: None)
  Receive Date: 20100629
  Receipt Date: 20100622
  Transmission Date: 20101027
  Serious: Yes (Other)
  Sender: FDA-Public Use
  Company Number: A0850454A

PATIENT
  Age: 69 Year
  Sex: Male
  Weight: 130.5 kg

DRUGS (2)
  1. AVANDIA [Suspect]
     Indication: DRUG USE FOR UNKNOWN INDICATION
     Dosage: 4MG PER DAY
     Route: 048
     Dates: start: 20020401, end: 20100324
  2. METFORMIN HCL [Concomitant]
     Dosage: 500MG PER DAY
     Route: 048
     Dates: start: 20100324

REACTIONS (4)
  - CHORIORETINOPATHY [None]
  - MACULAR DEGENERATION [None]
  - MACULAR OEDEMA [None]
  - VISUAL ACUITY REDUCED [None]
